FAERS Safety Report 6283594-3 (Version None)
Quarter: 2009Q3

REPORT INFORMATION
  Report Type: 
  Country: None (occurrence: None)
  Receive Date: 20090724
  Receipt Date: 20090717
  Transmission Date: 20100115
  Serious: Yes (Other)
  Sender: FDA-Public Use
  Company Number: CA-GILEAD-2009-0021857

PATIENT
  Age: 30 Year
  Sex: Female

DRUGS (2)
  1. TRUVADA [Suspect]
     Indication: HIV INFECTION
     Route: 048
     Dates: start: 20080306
  2. ENTECAVIR [Concomitant]
     Indication: HIV INFECTION
     Dates: start: 20080306

REACTIONS (1)
  - ABORTION INDUCED [None]
